FAERS Safety Report 5356910-4 (Version None)
Quarter: 2007Q2

REPORT INFORMATION
  Report Type: 
  Country: None (occurrence: None)
  Receive Date: 20070614
  Receipt Date: 20070209
  Transmission Date: 20071010
  Serious: No
  Sender: FDA-Public Use
  Company Number: US-ASTRAZENECA-2007UW02758

PATIENT
  Age: 82 Year
  Sex: Female
  Weight: 77.1 kg

DRUGS (4)
  1. ATACAND HCT [Suspect]
     Indication: HYPERTENSION
     Dosage: 32/12.5 MG PO
  2. THYROID TAB [Concomitant]
  3. XANAX [Concomitant]
     Dosage: 1/2 PRN
  4. BENTYL [Concomitant]

REACTIONS (2)
  - FATIGUE [None]
  - ILL-DEFINED DISORDER [None]
